FAERS Safety Report 7626760-4 (Version None)
Quarter: 2011Q3

REPORT INFORMATION
  Report Type: 
  Country: None (occurrence: None)
  Receive Date: 20110721
  Receipt Date: 20110712
  Transmission Date: 20111222
  Serious: Yes (Hospitalization)
  Sender: FDA-Public Use
  Company Number: US-ASTRAZENECA-2010SE30575

PATIENT
  Age: 47 Year
  Sex: Female

DRUGS (1)
  1. TOPROL-XL [Suspect]
     Route: 048

REACTIONS (5)
  - LABYRINTHITIS [None]
  - BACK DISORDER [None]
  - CARDIAC DISORDER [None]
  - VERTIGO [None]
  - HEAD DISCOMFORT [None]
